FAERS Safety Report 6526557-2 (Version None)
Quarter: 2010Q1

REPORT INFORMATION
  Report Type: 
  Country: None (occurrence: None)
  Receive Date: 20100105
  Receipt Date: 20091223
  Transmission Date: 20100710
  Serious: Yes (Hospitalization)
  Sender: FDA-Public Use
  Company Number: PHHY2009AT56968

PATIENT
  Sex: Female

DRUGS (1)
  1. TEGRETOL [Suspect]
     Indication: NEUROPATHY PERIPHERAL
     Dosage: 2 DF, UNK
     Dates: start: 20091128

REACTIONS (6)
  - BLOOD COUNT ABNORMAL [None]
  - CONTUSION [None]
  - CONVULSION [None]
  - FALL [None]
  - MEDICAL DEVICE IMPLANTATION [None]
  - VERTIGO [None]
